FAERS Safety Report 10883807 (Version 3)
Quarter: 2015Q2

REPORT INFORMATION
  Report Type: Spontaneous
  Country: US (occurrence: US)
  Receive Date: 20150304
  Receipt Date: 20150401
  Transmission Date: 20150821
  Serious: Yes (Other)
  Sender: FDA-Public Use
  Company Number: US-009507513-1502USA008827

PATIENT

DRUGS (2)
  1. ONCOTICE [Suspect]
     Active Substance: BACILLUS CALMETTE-GUERIN SUBSTRAIN TICE LIVE ANTIGEN
     Indication: BLADDER CANCER
     Dosage: SIX WEEKLY INSTILLATIONS OF 2-8 X 10^8 COLONY FORMING UNITS (UFC), QW
  2. ONCOTICE [Suspect]
     Active Substance: BACILLUS CALMETTE-GUERIN SUBSTRAIN TICE LIVE ANTIGEN
     Dosage: BCG MAINTENANCE, THREE WEEKLY INSTILLATIONS OF ONCOTICE AT 3 MONTHS, AND EVERY 6 MONTHS THEREAFTER

REACTIONS (1)
  - Bladder cancer recurrent [Unknown]
